FAERS Safety Report 8091632-0 (Version None)
Quarter: 2012Q1

REPORT INFORMATION
  Report Type: 
  Country: None (occurrence: None)
  Receive Date: 20120130
  Receipt Date: 20120130
  Transmission Date: 20120608
  Serious: No
  Sender: FDA-Public Use
  Company Number: None

PATIENT
  Sex: Female
  Weight: 60.3284 kg

DRUGS (1)
  1. TRAZODONE HCL [Suspect]
     Indication: SLEEP DISORDER THERAPY
     Dosage: 150MG 1 AT NIGHT SECOND WEEK IN JANUARY 2012
     Dates: start: 20120101

REACTIONS (6)
  - RESTLESSNESS [None]
  - PRODUCT SUBSTITUTION ISSUE [None]
  - DRUG INEFFECTIVE [None]
  - DIZZINESS [None]
  - DYSPNOEA [None]
  - SOMNOLENCE [None]
